FAERS Safety Report 21202728 (Version 1)
Quarter: 2022Q3

REPORT INFORMATION
  Report Type: Report from Study
  Country: JP (occurrence: JP)
  Receive Date: 20220811
  Receipt Date: 20220811
  Transmission Date: 20221027
  Serious: Yes (Hospitalization)
  Sender: FDA-Public Use
  Company Number: JP-BAYER-2022A107388

PATIENT
  Age: 75 Year
  Sex: Female
  Weight: 46 kg

DRUGS (1)
  1. REGORAFENIB [Suspect]
     Active Substance: REGORAFENIB
     Indication: Colorectal cancer
     Dosage: UNK
     Route: 048
     Dates: start: 20220627

REACTIONS (4)
  - Dehydration [Recovered/Resolved]
  - Decreased appetite [Recovered/Resolved]
  - Hypercreatininaemia [Recovered/Resolved]
  - Hyponatraemia [Recovered/Resolved]

NARRATIVE: CASE EVENT DATE: 20220717
